FAERS Safety Report 14250735 (Version 1)
Quarter: 2017Q4

REPORT INFORMATION
  Report Type: Spontaneous
  Country: US (occurrence: US)
  Receive Date: 20171205
  Receipt Date: 20171205
  Transmission Date: 20180321
  Serious: No
  Sender: FDA-Public Use
  Company Number: US-PFIZER INC-2017516003

PATIENT
  Sex: Female

DRUGS (1)
  1. CIPROFLOXACIN. [Suspect]
     Active Substance: CIPROFLOXACIN
     Dosage: UNK

REACTIONS (5)
  - Drug hypersensitivity [Unknown]
  - Stomatitis [Unknown]
  - Lip swelling [Unknown]
  - Pruritus [Unknown]
  - Urticaria [Unknown]
